FAERS Safety Report 7236408-9 (Version None)
Quarter: 2011Q1

REPORT INFORMATION
  Report Type: 
  Country: None (occurrence: None)
  Receive Date: 20110120
  Receipt Date: 20110118
  Transmission Date: 20110831
  Serious: Yes (Hospitalization, Disabling)
  Sender: FDA-Public Use
  Company Number: JP-PFIZER INC-2010122425

PATIENT
  Age: 71 Year
  Sex: Male
  Weight: 59 kg

DRUGS (5)
  1. NU LOTAN [Concomitant]
     Indication: HYPERTENSION
     Dosage: UNK
     Dates: end: 20100301
  2. CELECOXIB [Suspect]
     Indication: ARTHRALGIA
     Dosage: 100 MG, 1X/DAY
     Route: 048
     Dates: start: 20091001, end: 20100301
  3. RINLAXER [Concomitant]
     Indication: SPINAL OSTEOARTHRITIS
     Dosage: UNK
     Dates: end: 20100801
  4. ZYRTEC [Concomitant]
     Indication: RHINITIS ALLERGIC
     Dosage: UNK
     Dates: end: 20100301
  5. ALLOPURINOL [Concomitant]
     Indication: HYPERURICAEMIA
     Dosage: UNK

REACTIONS (2)
  - TUBULOINTERSTITIAL NEPHRITIS [None]
  - NEPHROTIC SYNDROME [None]
